FAERS Safety Report 15830674 (Version 1)
Quarter: 2019Q1

REPORT INFORMATION
  Report Type: Report from Study
  Country: US (occurrence: US)
  Receive Date: 20190116
  Receipt Date: 20190116
  Transmission Date: 20190417
  Serious: Yes (Life-Threatening, Hospitalization, Other)
  Sender: FDA-Public Use
  Company Number: US-ROCHE-1700094

PATIENT
  Age: 79 Year
  Sex: Male
  Weight: 112.5 kg

DRUGS (19)
  1. WELCHOL [Concomitant]
     Active Substance: COLESEVELAM HYDROCHLORIDE
     Dosage: 6X625MG QAM (DAILY MORNING)
     Route: 048
     Dates: start: 20150421
  2. NEXIUM [Concomitant]
     Active Substance: ESOMEPRAZOLE MAGNESIUM
  3. BACTRIM [Concomitant]
     Active Substance: SULFAMETHOXAZOLE\TRIMETHOPRIM
     Route: 065
     Dates: start: 20150423
  4. PREDNISONE. [Concomitant]
     Active Substance: PREDNISONE
  5. IRBESARTAN. [Concomitant]
     Active Substance: IRBESARTAN
     Dosage: QAM= DAILY IN MORNING
     Route: 048
     Dates: start: 20150421
  6. DAPSONE. [Concomitant]
     Active Substance: DAPSONE
  7. FUROSEMIDE. [Concomitant]
     Active Substance: FUROSEMIDE
     Route: 048
     Dates: start: 20150723
  8. RITUXIMAB. [Suspect]
     Active Substance: RITUXIMAB
     Route: 042
     Dates: start: 20151021, end: 20151104
  9. AVAPRO [Concomitant]
     Active Substance: IRBESARTAN
  10. LASIX [Concomitant]
     Active Substance: FUROSEMIDE
  11. AMLODIPINE [Concomitant]
     Active Substance: AMLODIPINE BESYLATE
     Route: 065
     Dates: start: 20150421
  12. ZAROXOLYN [Concomitant]
     Active Substance: METOLAZONE
  13. DULCOLAX (BISACODYL) [Concomitant]
     Active Substance: BISACODYL
  14. RITUXIMAB. [Suspect]
     Active Substance: RITUXIMAB
     Indication: FIBRILLARY GLOMERULONEPHRITIS
     Route: 042
     Dates: start: 20150423, end: 20150507
  15. NORVASC [Concomitant]
     Active Substance: AMLODIPINE BESYLATE
  16. ASPIRIN. [Concomitant]
     Active Substance: ASPIRIN
  17. ZANTAC [Concomitant]
     Active Substance: RANITIDINE HYDROCHLORIDE
  18. CRESTOR [Concomitant]
     Active Substance: ROSUVASTATIN CALCIUM
  19. CLOPIDOGREL [Concomitant]
     Active Substance: CLOPIDOGREL BISULFATE

REACTIONS (4)
  - Angina pectoris [Recovered/Resolved]
  - Cardiac stress test abnormal [Recovered/Resolved]
  - Arteriosclerosis coronary artery [Unknown]
  - Dyspnoea [Unknown]

NARRATIVE: CASE EVENT DATE: 20160119
